FAERS Safety Report 5612068-5 (Version None)
Quarter: 2008Q1

REPORT INFORMATION
  Report Type: 
  Country: None (occurrence: None)
  Receive Date: 20080129
  Receipt Date: 20080129
  Transmission Date: 20080703
  Serious: Yes (Other)
  Sender: FDA-Public Use
  Company Number: None

PATIENT
  Age: 67 Year
  Sex: Female
  Weight: 68.0396 kg

DRUGS (2)
  1. ZETIA [Suspect]
     Indication: BLOOD CHOLESTEROL INCREASED
     Dosage: DAILY
     Dates: start: 20070903, end: 20070915
  2. VITAMINS [Concomitant]

REACTIONS (3)
  - ARTHRALGIA [None]
  - GAIT DISTURBANCE [None]
  - MYALGIA [None]
